FAERS Safety Report 7735629-6 (Version None)
Quarter: 2011Q3

REPORT INFORMATION
  Report Type: 
  Country: None (occurrence: None)
  Receive Date: 20110907
  Receipt Date: 20110829
  Transmission Date: 20111222
  Serious: Yes (Other)
  Sender: FDA-Public Use
  Company Number: US-RB-029428-11

PATIENT
  Age: 38 Year
  Sex: Female

DRUGS (2)
  1. SUBOXONE [Suspect]
     Indication: DRUG DEPENDENCE
     Route: 060
     Dates: start: 20090101
  2. CELEXA [Concomitant]
     Indication: DEPRESSION
     Dosage: DOSING INFORMATION UNKNOWN.

REACTIONS (1)
  - BREAST CANCER [None]
